FAERS Safety Report 9690157 (Version 2)
Quarter: 2013Q4

REPORT INFORMATION
  Report Type: Spontaneous
  Country: BR (occurrence: BR)
  Receive Date: 20131115
  Receipt Date: 20131125
  Transmission Date: 20140711
  Serious: Yes (Other)
  Sender: FDA-Public Use
  Company Number: PHHY2013BR129974

PATIENT
  Sex: Female

DRUGS (1)
  1. ZOMETA [Suspect]
     Indication: BREAST CANCER
     Dosage: UNK UKN, EACH 28 DAYS
     Route: 042
     Dates: start: 2012

REACTIONS (4)
  - Osteonecrosis of jaw [Unknown]
  - Toothache [Unknown]
  - Gingival disorder [Unknown]
  - Oral discomfort [Unknown]
